FAERS Safety Report 20391027 (Version 1)
Quarter: 2022Q1

REPORT INFORMATION
  Report Type: Spontaneous
  Country: US (occurrence: US)
  Receive Date: 20220128
  Receipt Date: 20220128
  Transmission Date: 20220423
  Serious: Yes (Hospitalization)
  Sender: FDA-Public Use
  Company Number: US-BIOVITRUM-2022US01202

PATIENT
  Sex: Female

DRUGS (16)
  1. SYNAGIS [Suspect]
     Active Substance: PALIVIZUMAB
     Indication: Product used for unknown indication
     Route: 030
     Dates: start: 20211212
  2. CAROSPIR 25 MG/5ML ORAL SUSP [Concomitant]
  3. FUROSEMIDE 10MG/ML SOULUTION [Concomitant]
  4. SILDENAFIL CITRATE [Concomitant]
     Active Substance: SILDENAFIL CITRATE
  5. SILDENAFIL [Concomitant]
     Active Substance: SILDENAFIL
  6. OMEPRAZOLE 20MG TAB RAP DR [Concomitant]
  7. EPINEPHRINE [Concomitant]
     Active Substance: EPINEPHRINE
  8. FAMOTIDINE 40MG/5ML SUSP RECON [Concomitant]
  9. PULMICORT 0.25MG/2ML AMPUL-NEB [Concomitant]
  10. VITAMIN D3 10MCG/5ML LIQUID [Concomitant]
  11. MULTIVITAMIN 9 MG/15 ML LIQUID [Concomitant]
  12. ALBUTEROL SULFATE [Concomitant]
     Active Substance: ALBUTEROL SULFATE
  13. DIURIL 250 MG/5ML ORAL SUSP [Concomitant]
  14. IPRATROPIUM BROMIDE [Concomitant]
     Active Substance: IPRATROPIUM BROMIDE
  15. SODIUM CHLORIDE 3% VIAL-NEB [Concomitant]
  16. FERROUS SULPHATE 220 (44)/5 SOLUTION [Concomitant]

REACTIONS (1)
  - Gastrointestinal disorder [Unknown]
